FAERS Safety Report 8007052 (Version 2)
Quarter: 2013Q1

REPORT INFORMATION
  Report Type: Spontaneous
  Country: VE (occurrence: VE)
  Receive Date: 20110623
  Receipt Date: 20130115
  Transmission Date: 20140127
  Serious: Yes (Other)
  Sender: FDA-Public Use
  Company Number: PHHY2011VE52638

PATIENT
  Age: 86 Year
  Sex: Female

DRUGS (3)
  1. ACLASTA [Suspect]
     Indication: OSTEOPOROSIS
     Dosage: 5 MG
     Route: 042
     Dates: start: 201011
  2. ACLASTA [Suspect]
     Dosage: 5 MG
     Route: 042
     Dates: start: 201111
  3. NATECAL [Concomitant]
     Dosage: UNK UKN, UNK
     Route: 048

REACTIONS (5)
  - Hepatic steatosis [Unknown]
  - Syncope [Recovered/Resolved]
  - Discomfort [Recovered/Resolved]
  - Abdominal pain [Unknown]
  - Dizziness [Recovered/Resolved]
